FAERS Safety Report 9888586 (Version 2)
Quarter: 2014Q1

REPORT INFORMATION
  Report Type: Spontaneous
  Country: US (occurrence: US)
  Receive Date: 20140211
  Receipt Date: 20140211
  Transmission Date: 20141002
  Serious: Yes (Hospitalization)
  Sender: FDA-Public Use
  Company Number: US-SA-2013SA118271

PATIENT
  Age: 65 Year
  Sex: Male

DRUGS (18)
  1. FABRAZYME [Suspect]
     Indication: FABRY^S DISEASE
     Route: 042
     Dates: start: 200405
  2. DILANTIN [Suspect]
     Indication: PRODUCT USED FOR UNKNOWN INDICATION
     Dosage: DOWN TITRATION OF DILANTIN DOSE
     Route: 065
  3. WARFARIN SODIUM [Suspect]
     Indication: PRODUCT USED FOR UNKNOWN INDICATION
     Route: 065
  4. ARICEPT [Concomitant]
     Dates: start: 20110208
  5. ASPIRIN [Concomitant]
     Dates: start: 20060717
  6. ATORVASTATIN [Concomitant]
     Dates: start: 20060717
  7. CARBIDOPA/LEVODOPA [Concomitant]
     Dosage: 25-100 MG
     Dates: start: 20110208
  8. DIPYRIDAMOLE [Concomitant]
     Dosage: 3 TABLETS ALTERNATING TO 4 TABLETS ON THE NEXT DAY
     Dates: start: 20061030
  9. GENGRAF [Concomitant]
     Dates: start: 20000717
  10. FERROUS SULPHATE [Concomitant]
     Dates: start: 20060717
  11. PANTOPRAZOLE SODIUM [Concomitant]
     Dates: start: 20060717
  12. PHENYTOIN SODIUM [Concomitant]
     Dosage: 300 MG EVERY OTHER DAY ALTERNATING WITH 400 MG EVERY OTHER DAY
     Dates: start: 20061003
  13. PREDNISONE [Concomitant]
     Dates: start: 20000101
  14. SULFAMETHOXAZOLE [Concomitant]
     Dosage: 800-160 MG
     Dates: start: 20060717
  15. TYLENOL [Concomitant]
     Indication: PAIN
  16. VITAMIN D [Concomitant]
     Dosage: DOSE:1000 UNIT(S)
     Dates: start: 20120718
  17. OYST-CAL [Concomitant]
     Dates: start: 19850601
  18. MULTIVITAMINS [Concomitant]
     Dates: start: 20090223

REACTIONS (4)
  - Fall [Recovered/Resolved]
  - Overdose [Recovered/Resolved]
  - International normalised ratio increased [Recovered/Resolved]
  - Speech disorder [Recovered/Resolved]
